FAERS Safety Report 9413177 (Version 2)
Quarter: 2014Q1

REPORT INFORMATION
  Report Type: Spontaneous
  Country: FR (occurrence: FR)
  Receive Date: 20130722
  Receipt Date: 20140106
  Transmission Date: 20141002
  Serious: Yes (Hospitalization)
  Sender: FDA-Public Use
  Company Number: FR-ROCHE-1251139

PATIENT
  Age: 41 Year
  Sex: Female

DRUGS (3)
  1. CELLCEPT [Suspect]
     Indication: MULTIPLE SCLEROSIS
     Route: 048
     Dates: start: 2010
  2. MITOXANTRONE [Suspect]
     Indication: MULTIPLE SCLEROSIS
     Route: 041
     Dates: start: 2009, end: 2009
  3. SOLU-MEDROL [Concomitant]
     Route: 065
     Dates: start: 201202

REACTIONS (1)
  - Breast cancer [Recovered/Resolved]
